FAERS Safety Report 9536568 (Version 1)
Quarter: 2013Q3

REPORT INFORMATION
  Report Type: Spontaneous
  Country: US (occurrence: US)
  Receive Date: 20130919
  Receipt Date: 20130919
  Transmission Date: 20140515
  Serious: Yes (Other)
  Sender: FDA-Public Use
  Company Number: US-JNJFOC-20130906408

PATIENT
  Sex: Female

DRUGS (1)
  1. STELARA [Suspect]
     Indication: PRODUCT USED FOR UNKNOWN INDICATION
     Dosage: STARTED IN FALL 2011
     Route: 058
     Dates: start: 2011

REACTIONS (2)
  - Pulmonary embolism [Unknown]
  - Drug dose omission [Unknown]
